FAERS Safety Report 5118061-3 (Version None)
Quarter: 2006Q3

REPORT INFORMATION
  Report Type: 
  Country: None (occurrence: None)
  Receive Date: 20060929
  Receipt Date: 20060926
  Transmission Date: 20061208
  Serious: Yes (Hospitalization)
  Sender: FDA-Public Use
  Company Number: GB-MERCK-0609GBR00133

PATIENT
  Age: 8 Month
  Sex: Male

DRUGS (3)
  1. TIMOPTIC [Suspect]
     Indication: ACCIDENTAL EXPOSURE
     Route: 065
  2. PROPRANOLOL HYDROCHLORIDE [Suspect]
     Indication: SUPRAVENTRICULAR TACHYCARDIA
     Route: 065
  3. SODIUM CHLORIDE [Concomitant]
     Indication: NASAL CONGESTION
     Route: 065

REACTIONS (14)
  - ACCIDENTAL EXPOSURE [None]
  - CARDIOTOXICITY [None]
  - DEPRESSED LEVEL OF CONSCIOUSNESS [None]
  - DRUG INTERACTION [None]
  - HEART RATE DECREASED [None]
  - HYPOTENSION [None]
  - HYPOTONIA [None]
  - LETHARGY [None]
  - METABOLIC ACIDOSIS [None]
  - MIOSIS [None]
  - NERVOUS SYSTEM DISORDER [None]
  - PERIPHERAL COLDNESS [None]
  - PULSE ABNORMAL [None]
  - RESPIRATORY RATE DECREASED [None]
